FAERS Safety Report 8503688-9 (Version None)
Quarter: 2012Q3

REPORT INFORMATION
  Report Type: 
  Country: None (occurrence: None)
  Receive Date: 20120711
  Receipt Date: 20120706
  Transmission Date: 20120928
  Serious: Yes (Hospitalization)
  Sender: FDA-Public Use
  Company Number: JP-TEVA-346693USA

PATIENT
  Sex: Female

DRUGS (10)
  1. RITUXIMAB [Suspect]
     Indication: B-CELL LYMPHOMA
     Dosage: 375 MG/M2, UNKNOWN/D
     Route: 042
     Dates: start: 20120418
  2. SULFAMETHOXAZOLE AND TRIMETHOPRIM [Concomitant]
     Dates: start: 20120417
  3. TREANDA [Suspect]
     Dosage: 90 MG/M2 UID/QD
     Route: 042
     Dates: start: 20120517, end: 20120518
  4. ALLOPURINOL [Concomitant]
     Dates: start: 20120417
  5. VALGANCICLOVIR HCL [Concomitant]
     Dates: start: 20120619, end: 20120622
  6. ACYCLOVIR [Concomitant]
     Dates: start: 20120417
  7. GANCICLOVIR [Concomitant]
     Dates: start: 20120623
  8. TREANDA [Suspect]
     Indication: B-CELL LYMPHOMA
     Dosage: 90 MG/M2, UID/QD
     Route: 042
     Dates: start: 20120419, end: 20120420
  9. TREANDA [Suspect]
     Dosage: 60 MG/M2 UID/QD
     Route: 042
     Dates: start: 20120614
  10. URSODIOL [Concomitant]
     Dates: start: 20120614

REACTIONS (1)
  - PNEUMONIA CYTOMEGALOVIRAL [None]
